FAERS Safety Report 15005139 (Version 1)
Quarter: 2018Q2

REPORT INFORMATION
  Report Type: Spontaneous
  Country: GB (occurrence: GB)
  Receive Date: 20180613
  Receipt Date: 20180613
  Transmission Date: 20180711
  Serious: Yes (Other)
  Sender: FDA-Public Use
  Company Number: GB-GLAXOSMITHKLINE-GB2018GSK103249

PATIENT
  Sex: Female

DRUGS (1)
  1. SCOPODERM TTS [Suspect]
     Active Substance: SCOPOLAMINE
     Indication: SALIVARY HYPERSECRETION
     Dosage: 1.5 MG, UNK
     Route: 062

REACTIONS (3)
  - Body temperature increased [Not Recovered/Not Resolved]
  - Intentional product use issue [Unknown]
  - Urinary retention [Unknown]
